FAERS Safety Report 7356296-X (Version None)
Quarter: 2011Q1

REPORT INFORMATION
  Report Type: 
  Country: None (occurrence: None)
  Receive Date: 20110316
  Receipt Date: 20110310
  Transmission Date: 20110831
  Serious: Yes (Congenital Anomaly, Other)
  Sender: FDA-Public Use
  Company Number: US-ABBOTT-11P-163-0710700-00

PATIENT
  Sex: Male

DRUGS (1)
  1. DEPAKOTE [Suspect]
     Indication: DRUG EXPOSURE DURING PREGNANCY
     Route: 064

REACTIONS (13)
  - HEART DISEASE CONGENITAL [None]
  - EMOTIONAL DISTRESS [None]
  - DRUG EXPOSURE DURING PREGNANCY [None]
  - PREMATURE BABY [None]
  - DEVELOPMENTAL DELAY [None]
  - CONGENITAL GENITOURINARY ABNORMALITY [None]
  - DEFORMITY [None]
  - VENTRICULAR SEPTAL DEFECT [None]
  - NERVOUS SYSTEM DISORDER [None]
  - ANHEDONIA [None]
  - PAIN [None]
  - INJURY [None]
  - TALIPES [None]
